FAERS Safety Report 10087152 (Version 1)
Quarter: 2014Q2

REPORT INFORMATION
  Report Type: Spontaneous
  Country: GB (occurrence: GB)
  Receive Date: 20140418
  Receipt Date: 20140418
  Transmission Date: 20141212
  Serious: Yes (Other)
  Sender: FDA-Public Use
  Company Number: GB-PFIZER INC-2014108649

PATIENT
  Age: 45 Year
  Sex: Male
  Weight: 127.45 kg

DRUGS (5)
  1. RAMIPRIL [Suspect]
     Indication: MYOCARDIAL INFARCTION
     Dosage: 10 MG, UNK
     Route: 048
  2. ATORVASTATIN [Concomitant]
     Dosage: 80 MG, UNK
     Route: 065
  3. BISOPROLOL [Concomitant]
     Dosage: UNK
     Route: 065
  4. CITALOPRAM [Concomitant]
     Dosage: 20 MG, UNK
     Route: 065
  5. ASPIRIN [Concomitant]
     Dosage: 5 MG, UNK
     Route: 065

REACTIONS (1)
  - Enlarged uvula [Not Recovered/Not Resolved]
